FAERS Safety Report 20631971 (Version 1)
Quarter: 2022Q1

REPORT INFORMATION
  Report Type: Spontaneous
  Country: JP (occurrence: JP)
  Receive Date: 20220324
  Receipt Date: 20220324
  Transmission Date: 20220423
  Serious: Yes (Death, Other)
  Sender: FDA-Public Use
  Company Number: JP-MSD-M2022-11026

PATIENT
  Age: 6 Decade
  Sex: Female

DRUGS (7)
  1. BELSOMRA [Suspect]
     Active Substance: SUVOREXANT
     Indication: Suicide attempt
     Dosage: 200 MILLIGRAM
     Route: 048
     Dates: start: 202203, end: 202203
  2. BELSOMRA [Suspect]
     Active Substance: SUVOREXANT
     Indication: Suicide attempt
     Dosage: 40 MILLIGRAM
     Route: 048
     Dates: start: 202203, end: 202203
  3. ETIZOLAM [Concomitant]
     Active Substance: ETIZOLAM
     Dosage: 592 MILLIGRAM
     Route: 048
     Dates: start: 202203, end: 202203
  4. ESTAZOLAM [Concomitant]
     Active Substance: ESTAZOLAM
     Dosage: 116 MILLIGRAM
     Route: 048
     Dates: start: 202203, end: 202203
  5. REBAMIPIDE [Concomitant]
     Active Substance: REBAMIPIDE
     Dosage: 1400 MILLIGRAM
     Route: 048
     Dates: start: 202203, end: 202203
  6. LOXOPROFEN SODIUM [Concomitant]
     Active Substance: LOXOPROFEN SODIUM
     Dosage: 600 MILLIGRAM
     Route: 048
     Dates: start: 202203, end: 202203
  7. MIRTAZAPINE [Concomitant]
     Active Substance: MIRTAZAPINE
     Dosage: 1275 MILLIGRAM
     Route: 048
     Dates: start: 202203, end: 202203

REACTIONS (3)
  - Completed suicide [Fatal]
  - Cardiac arrest [Unknown]
  - Intentional overdose [Unknown]

NARRATIVE: CASE EVENT DATE: 20220301
